FAERS Safety Report 9237309 (Version 3)
Quarter: 2013Q3

REPORT INFORMATION
  Report Type: Spontaneous
  Country: US (occurrence: US)
  Receive Date: 20130417
  Receipt Date: 20130812
  Transmission Date: 20140515
  Serious: No
  Sender: FDA-Public Use
  Company Number: US-009507513-1304USA006684

PATIENT
  Age: 77 Year
  Sex: Female
  Weight: 57.14 kg

DRUGS (6)
  1. CLARITIN-D-24 [Suspect]
     Indication: HYPERSENSITIVITY
     Dosage: 10 MG, QAM
     Route: 048
     Dates: start: 20121212, end: 20121217
  2. CLARITIN-D-24 [Suspect]
     Indication: SNEEZING
     Dosage: 10 MG, ONCE
     Route: 048
     Dates: start: 20130307
  3. CLARITIN-D-24 [Suspect]
     Indication: RHINORRHOEA
  4. CLARITIN-D-24 [Suspect]
     Indication: HEADACHE
  5. LEVOTHYROXINE SODIUM [Concomitant]
     Indication: HYPOTHYROIDISM
     Dosage: .075 MG, QD
     Route: 048
  6. XALATAN [Concomitant]
     Indication: GLAUCOMA
     Dosage: 1 DF, HS

REACTIONS (3)
  - Heart rate increased [Recovered/Resolved]
  - Blood pressure increased [Recovered/Resolved]
  - Insomnia [Recovered/Resolved]
